FAERS Safety Report 4739055-3 (Version None)
Quarter: 2005Q3

REPORT INFORMATION
  Report Type: 
  Country: None (occurrence: None)
  Receive Date: 20050810
  Receipt Date: 20050718
  Transmission Date: 20060218
  Serious: Yes (Death, Other)
  Sender: FDA-Public Use
  Company Number: PL-SANOFI-SYNTHELABO-F01200501283

PATIENT
  Sex: Male
  Weight: 78 kg

DRUGS (9)
  1. CLOPIDOGREL BISULFATE [Suspect]
     Indication: ACUTE MYOCARDIAL INFARCTION
     Dates: start: 20050628
  2. ENOXAPARIN SODIUM [Concomitant]
     Indication: ACUTE MYOCARDIAL INFARCTION
     Dosage: UNK
     Route: 065
     Dates: start: 20050627, end: 20050628
  3. ASPIRIN [Concomitant]
     Indication: MYOCARDIAL ISCHAEMIA
  4. INSULIN [Concomitant]
     Indication: DIABETES MELLITUS
     Dates: start: 20050627
  5. MORPHINE [Concomitant]
     Indication: PULMONARY OEDEMA
     Dosage: UNK
     Route: 065
     Dates: start: 20050627, end: 20050629
  6. FUROSEMIDE [Concomitant]
     Indication: PULMONARY OEDEMA
     Dosage: UNK
     Route: 065
     Dates: start: 20050627, end: 20050630
  7. TRANDOLAPRIL [Concomitant]
     Indication: CARDIAC FAILURE
     Dosage: UNK
     Route: 065
     Dates: start: 20050627
  8. SIMVASTATIN [Concomitant]
     Indication: MYOCARDIAL ISCHAEMIA
     Dosage: UNK
     Route: 065
     Dates: start: 20050627
  9. CARVEDILOL [Concomitant]
     Indication: CARDIAC FAILURE
     Dosage: UNK
     Route: 065
     Dates: start: 20050628

REACTIONS (7)
  - CARDIAC ARREST [None]
  - CARDIOGENIC SHOCK [None]
  - DRUG INEFFECTIVE [None]
  - GASTROINTESTINAL HAEMORRHAGE [None]
  - INTRACARDIAC THROMBUS [None]
  - MYOCARDIAL INFARCTION [None]
  - VENTRICULAR FIBRILLATION [None]
